FAERS Safety Report 16128436 (Version 2)
Quarter: 2019Q2

REPORT INFORMATION
  Report Type: Other
  Country: US (occurrence: IT)
  Receive Date: 20190328
  Receipt Date: 20190410
  Transmission Date: 20190711
  Serious: Yes (Hospitalization, Other)
  Sender: FDA-Public Use
  Company Number: US-APOTEX-2019AP010458

PATIENT
  Age: 55 Year
  Sex: Female

DRUGS (10)
  1. DELTACORTENE [Suspect]
     Active Substance: PREDNISONE
     Indication: DRUG ABUSE
     Dosage: 10 DF, UNK
     Route: 048
     Dates: start: 20190304, end: 20190304
  2. PANTOPRAZOLE [Suspect]
     Active Substance: PANTOPRAZOLE
     Indication: DRUG ABUSE
     Dosage: 140 DF, UNK (IN TOTAL)
     Route: 048
     Dates: start: 20190304, end: 20190304
  3. BRUFEN                             /00109201/ [Suspect]
     Active Substance: IBUPROFEN
     Indication: DRUG ABUSE
     Dosage: 20 DF, UNK (IN TOTAL)
     Route: 048
     Dates: start: 20190304, end: 20190304
  4. DEURSIL [Suspect]
     Active Substance: URSODIOL
     Indication: DRUG ABUSE
     Dosage: 5 DF, UNK (IN TOTAL)
     Route: 048
     Dates: start: 20190304, end: 20190304
  5. PARACODINA                         /00063002/ [Suspect]
     Active Substance: DIHYDROCODEINE BITARTRATE
     Indication: DRUG ABUSE
     Dosage: UNK
     Route: 048
     Dates: start: 20190304, end: 20190304
  6. BREXIN                             /00020001/ [Suspect]
     Active Substance: ACETAMINOPHEN
     Indication: DRUG ABUSE
     Dosage: 12 DF, UNK (IN TOTAL)
     Route: 048
     Dates: start: 20190304, end: 20190304
  7. AUGMENTIN [Suspect]
     Active Substance: AMOXICILLIN\CLAVULANATE POTASSIUM
     Indication: DRUG ABUSE
     Dosage: 12 DF, UNK (IN TOTAL)
     Route: 048
     Dates: start: 20190304, end: 20190304
  8. SPORANOX [Suspect]
     Active Substance: ITRACONAZOLE
     Indication: DRUG ABUSE
     Dosage: 10 DF, UNK (IN TOTAL)
     Route: 048
     Dates: start: 20190304, end: 20190304
  9. NITROFURANTOIN MACROCRYSTALS [Suspect]
     Active Substance: NITROFURANTOIN
     Indication: DRUG ABUSE
     Dosage: 20 DF, PRN
     Route: 048
     Dates: start: 20190304, end: 20190304
  10. DEFLAN [Suspect]
     Active Substance: DEFLAZACORT
     Indication: DRUG ABUSE
     Dosage: 10 DF, UNK
     Route: 048
     Dates: start: 20190304, end: 20190304

REACTIONS (3)
  - Drug abuse [Recovered/Resolved]
  - Sopor [Recovered/Resolved]
  - Aphasia [Recovered/Resolved]

NARRATIVE: CASE EVENT DATE: 20190304
